FAERS Safety Report 18020610 (Version 1)
Quarter: 2020Q3

REPORT INFORMATION
  Report Type: Spontaneous
  Country: CA (occurrence: CA)
  Receive Date: 20200714
  Receipt Date: 20200714
  Transmission Date: 20201103
  Serious: Yes (Other)
  Sender: FDA-Public Use
  Company Number: CA-ROCHE-2641109

PATIENT
  Age: 49 Year
  Sex: Female

DRUGS (1)
  1. XOLAIR [Suspect]
     Active Substance: OMALIZUMAB
     Indication: CHRONIC SPONTANEOUS URTICARIA
     Dosage: 300 MG, QMO (1 EVERY 4 WEEKS)
     Route: 058

REACTIONS (6)
  - Headache [Unknown]
  - Nasal congestion [Unknown]
  - Cough [Unknown]
  - Neoplasm malignant [Unknown]
  - Oropharyngeal pain [Unknown]
  - Nasopharyngitis [Unknown]
